FAERS Safety Report 23551984 (Version 4)
Quarter: 2025Q1

REPORT INFORMATION
  Report Type: Spontaneous
  Country: US (occurrence: US)
  Receive Date: 20240222
  Receipt Date: 20250331
  Transmission Date: 20250408
  Serious: Yes (Hospitalization, Other)
  Sender: PROCTER AND GAMBLE
  Company Number: US-PROCTER+GAMBLE-PH24001563

PATIENT
  Age: 44 Year
  Sex: Male

DRUGS (2)
  1. DEXTROMETHORPHAN [Suspect]
     Active Substance: DEXTROMETHORPHAN
     Indication: Chronic sinusitis
     Dosage: UP TO 1422 MG/ DAY
     Route: 048
  2. LEVETIRACETAM [Concomitant]
     Active Substance: LEVETIRACETAM
     Dosage: 1500 MILLIGRAM, 2 /DAY

REACTIONS (14)
  - Seizure [Recovering/Resolving]
  - Overdose [Unknown]
  - Drug abuse [Recovering/Resolving]
  - Speech disorder [Recovering/Resolving]
  - Euphoric mood [Recovering/Resolving]
  - Tachyphrenia [Recovering/Resolving]
  - Substance-induced psychotic disorder [Recovering/Resolving]
  - Depersonalisation/derealisation disorder [Recovering/Resolving]
  - Derealisation [Recovering/Resolving]
  - Musculoskeletal stiffness [Recovering/Resolving]
  - Thinking abnormal [Recovering/Resolving]
  - Affective disorder [Recovering/Resolving]
  - Affect lability [Unknown]
  - Tachycardia [Unknown]
